FAERS Safety Report 7574876-3 (Version None)
Quarter: 2011Q2

REPORT INFORMATION
  Report Type: 
  Country: None (occurrence: None)
  Receive Date: 20110627
  Receipt Date: 20110614
  Transmission Date: 20111010
  Serious: Yes (Hospitalization)
  Sender: FDA-Public Use
  Company Number: CA-JNJFOC-20110607606

PATIENT
  Sex: Female
  Weight: 44.4 kg

DRUGS (1)
  1. REMICADE [Suspect]
     Indication: CROHN'S DISEASE
     Route: 042
     Dates: start: 20110113

REACTIONS (3)
  - URINARY TRACT INFECTION [None]
  - SPINAL FRACTURE [None]
  - ASCITES [None]
